FAERS Safety Report 5121674-6 (Version None)
Quarter: 2006Q4

REPORT INFORMATION
  Report Type: 
  Country: None (occurrence: None)
  Receive Date: 20061006
  Receipt Date: 20050728
  Transmission Date: 20070319
  Serious: Yes (Hospitalization)
  Sender: FDA-Public Use
  Company Number: US-GLAXOSMITHKLINE-A0568183A

PATIENT
  Age: 43 Year
  Sex: Female
  Weight: 54.5 kg

DRUGS (5)
  1. PAXIL CR [Suspect]
     Indication: ANXIETY
     Dosage: 30MG UNKNOWN
     Route: 048
     Dates: start: 20031101, end: 20040201
  2. VICODIN [Suspect]
     Indication: DRUG USE FOR UNKNOWN INDICATION
     Dosage: 17TAB SINGLE DOSE
     Route: 048
     Dates: start: 20040217, end: 20040217
  3. ACETAMINOPHEN [Concomitant]
  4. ALCOHOL [Concomitant]
     Route: 048
  5. NUVARING [Concomitant]
     Indication: ORAL CONTRACEPTION

REACTIONS (11)
  - AGITATION [None]
  - AKATHISIA [None]
  - ANXIETY [None]
  - DEPENDENCE [None]
  - DRUG WITHDRAWAL SYNDROME [None]
  - LIBIDO DECREASED [None]
  - MOOD SWINGS [None]
  - PANIC ATTACK [None]
  - SOMNOLENCE [None]
  - SUICIDAL IDEATION [None]
  - SUICIDE ATTEMPT [None]
